FAERS Safety Report 17490675 (Version 1)
Quarter: 2020Q1

REPORT INFORMATION
  Report Type: Spontaneous
  Country: US (occurrence: US)
  Receive Date: 20200303
  Receipt Date: 20200303
  Transmission Date: 20200409
  Serious: No
  Sender: FDA-Public Use
  Company Number: US-AKORN PHARMACEUTICALS-2019AKN00985

PATIENT
  Age: 15 Year
  Sex: Female
  Weight: 60.77 kg

DRUGS (3)
  1. MYORISAN [Suspect]
     Active Substance: ISOTRETINOIN
     Dosage: 40 MG, 1X/DAY
     Route: 048
     Dates: start: 20190402, end: 20190430
  2. UNSPECIFIED BIRTH CONTROL PILLS [Concomitant]
     Active Substance: UNSPECIFIED INGREDIENT
  3. VALTREX [Concomitant]
     Active Substance: VALACYCLOVIR HYDROCHLORIDE
     Dosage: UNK
     Dates: start: 20190426

REACTIONS (10)
  - Nervous system disorder [Recovered/Resolved]
  - Off label use [Recovered/Resolved]
  - Hypoaesthesia [Recovered/Resolved]
  - Altered state of consciousness [Not Recovered/Not Resolved]
  - Idiopathic intracranial hypertension [Recovered/Resolved]
  - Sensory disturbance [Recovered/Resolved]
  - Hypokinesia [Recovered/Resolved]
  - Feeling abnormal [Recovered/Resolved]
  - Migraine [Recovered/Resolved]
  - Fatigue [Recovered/Resolved]

NARRATIVE: CASE EVENT DATE: 20190402
